FAERS Safety Report 19844464 (Version 2)
Quarter: 2021Q3

REPORT INFORMATION
  Report Type: Spontaneous
  Country: US (occurrence: US)
  Receive Date: 20210916
  Receipt Date: 20210928
  Transmission Date: 20211014
  Serious: Yes (Life-Threatening, Hospitalization)
  Sender: FDA-Public Use
  Company Number: US-TEVA-2021-US-1952556

PATIENT
  Age: 23 Year
  Sex: Male

DRUGS (5)
  1. EPOPROSTENOL. [Suspect]
     Active Substance: EPOPROSTENOL
     Indication: HYPOXIA
     Route: 065
  2. EPINEPHRINE. [Suspect]
     Active Substance: EPINEPHRINE
     Indication: PULSE ABSENT
     Route: 016
  3. CALCIUM [Concomitant]
     Active Substance: CALCIUM
     Indication: PULSE ABSENT
     Route: 065
  4. BICARBONATE [Concomitant]
     Active Substance: SODIUM BICARBONATE
     Indication: PULSE ABSENT
     Route: 065
  5. EPINEPHRINE. [Suspect]
     Active Substance: EPINEPHRINE
     Indication: RESUSCITATION
     Route: 042

REACTIONS (2)
  - Drug ineffective [Unknown]
  - Ventricular fibrillation [Recovered/Resolved]
